FAERS Safety Report 13010283 (Version 1)
Quarter: 2016Q4

REPORT INFORMATION
  Report Type: Spontaneous
  Country: US (occurrence: US)
  Receive Date: 20161206
  Receipt Date: 20161206
  Transmission Date: 20170207
  Serious: Yes (Death)
  Sender: FDA-Public Use
  Company Number: None

PATIENT
  Age: 78 Year
  Sex: Male

DRUGS (1)
  1. LUPRON DEPOT [Suspect]
     Active Substance: LEUPROLIDE ACETATE
     Indication: PROSTATE CANCER
     Dosage: LUPRON DEPOT 22.5MG - SUBCUTANEOUS - Q3 MONTHS
     Route: 058
     Dates: start: 20150827

REACTIONS (1)
  - Death [None]

NARRATIVE: CASE EVENT DATE: 20161122
